FAERS Safety Report 11299007 (Version 1)
Quarter: 2015Q3

REPORT INFORMATION
  Report Type: Spontaneous
  Country: US (occurrence: US)
  Receive Date: 20150722
  Receipt Date: 20150722
  Transmission Date: 20151125
  Serious: No
  Sender: FDA-Public Use
  Company Number: US-ELI_LILLY_AND_COMPANY-US201205004221

PATIENT
  Sex: Male
  Weight: 50.9 kg

DRUGS (2)
  1. HUMATROPE [Suspect]
     Active Substance: SOMATROPIN
     Dosage: 2.3 MG, UNK
  2. HUMATROPE [Suspect]
     Active Substance: SOMATROPIN
     Indication: GROWTH HORMONE DEFICIENCY
     Dosage: 2.5 MG, QD
     Route: 065
     Dates: start: 20120330

REACTIONS (3)
  - Sinusitis [Recovered/Resolved]
  - Stress [Unknown]
  - Headache [Recovered/Resolved]
